FAERS Safety Report 6123160-3 (Version None)
Quarter: 2009Q1

REPORT INFORMATION
  Report Type: 
  Country: None (occurrence: None)
  Receive Date: 20090318
  Receipt Date: 20080421
  Transmission Date: 20090719
  Serious: Yes (Life-Threatening, Other)
  Sender: FDA-Public Use
  Company Number: PHHY2008JP33818

PATIENT
  Age: 19 Year
  Sex: Male

DRUGS (1)
  1. VOLTAREN [Suspect]
     Dosage: 275 MG/DAY
     Route: 048

REACTIONS (2)
  - OVERDOSE [None]
  - SUICIDE ATTEMPT [None]
